FAERS Safety Report 8965284 (Version 2)
Quarter: 2013Q1

REPORT INFORMATION
  Report Type: Report from Study
  Country: US (occurrence: US)
  Receive Date: 20121214
  Receipt Date: 20130125
  Transmission Date: 20140127
  Serious: Yes (Hospitalization)
  Sender: FDA-Public Use
  Company Number: US-ROCHE-1163560

PATIENT
  Age: 54 Year
  Sex: Female
  Weight: 74 kg

DRUGS (17)
  1. BEVACIZUMAB [Suspect]
     Indication: MENINGIOMA
     Route: 042
     Dates: start: 20120727
  2. EVEROLIMUS [Suspect]
     Indication: MENINGIOMA
     Route: 048
     Dates: start: 20120727, end: 20121004
  3. ALPRAZOLAM [Concomitant]
     Indication: ANXIETY
     Route: 065
     Dates: start: 20110519
  4. ENDOCET [Concomitant]
     Indication: PAIN
     Dosage: 10-25 Q4 HRS
     Route: 065
     Dates: start: 20110519
  5. MORPHINE SR [Concomitant]
     Indication: PAIN
     Route: 065
  6. CIPROFLOXACIN [Concomitant]
     Indication: URINARY TRACT INFECTION
     Route: 065
     Dates: start: 20121114
  7. LASIX [Concomitant]
     Indication: OEDEMA
     Route: 065
     Dates: start: 20120824
  8. TEMAZEPAM [Concomitant]
     Indication: SLEEP DISORDER
     Route: 065
     Dates: start: 20120125
  9. PRILOSEC [Concomitant]
     Indication: DYSPEPSIA
  10. DILANTIN [Concomitant]
     Indication: CONVULSION
     Route: 065
     Dates: start: 20110519
  11. LISINOPRIL [Concomitant]
     Indication: HYPERTENSION
  12. PROMETHAZINE [Concomitant]
     Indication: NAUSEA
     Dosage: AS PER REQUIRED
     Route: 065
  13. ASPIRIN [Concomitant]
     Indication: PROPHYLAXIS
     Route: 048
     Dates: start: 20110514
  14. FLONASE [Concomitant]
     Dosage: 50 MCG AS PER NECESSARY
     Route: 065
     Dates: start: 20110514
  15. COMBIVENT [Concomitant]
     Route: 065
     Dates: start: 20110519
  16. PULMICORT TURBUHALER [Concomitant]
     Route: 065
     Dates: start: 20110727
  17. VITAMIN D [Concomitant]
     Route: 065
     Dates: start: 20110519

REACTIONS (2)
  - Meningioma [Unknown]
  - Thrombotic microangiopathy [Unknown]
